FAERS Safety Report 7037991-9 (Version None)
Quarter: 2010Q4

REPORT INFORMATION
  Report Type: 
  Country: None (occurrence: None)
  Receive Date: 20101011
  Receipt Date: 20101005
  Transmission Date: 20110411
  Serious: Yes (Death)
  Sender: FDA-Public Use
  Company Number: US-MYLANLABS-2010S1018242

PATIENT
  Age: 61 Year
  Sex: Male

DRUGS (1)
  1. AMNESTEEM [Suspect]
     Indication: GLIOBLASTOMA MULTIFORME
     Dates: start: 20100701, end: 20100801

REACTIONS (1)
  - GLIOBLASTOMA MULTIFORME [None]
